FAERS Safety Report 19280874 (Version 1)
Quarter: 2021Q2

REPORT INFORMATION
  Report Type: Spontaneous
  Country: US (occurrence: US)
  Receive Date: 20210520
  Receipt Date: 20210520
  Transmission Date: 20210717
  Serious: No
  Sender: FDA-Public Use
  Company Number: US-PFIZER INC-2021450410

PATIENT
  Age: 29 Year
  Sex: Female

DRUGS (1)
  1. PREPIDIL [Suspect]
     Active Substance: DINOPROSTONE
     Dosage: UNK

REACTIONS (1)
  - Drug hypersensitivity [Unknown]
